FAERS Safety Report 4522010-6 (Version None)
Quarter: 2004Q4

REPORT INFORMATION
  Report Type: 
  Country: None (occurrence: None)
  Receive Date: 20041209
  Receipt Date: 20041108
  Transmission Date: 20050328
  Serious: Yes (Death)
  Sender: FDA-Public Use
  Company Number: PHFR2004GB04136

PATIENT
  Age: 83 Year
  Sex: Female

DRUGS (5)
  1. ATENOLOL [Concomitant]
     Indication: HYPERTENSION
     Dosage: 50 MG, QD
     Route: 048
     Dates: start: 20010611
  2. BENDROFLUAZIDE [Concomitant]
     Dosage: 2.5 MG, QD
     Route: 048
     Dates: start: 20021002
  3. FELODIPINE [Concomitant]
     Indication: HYPERTENSION
     Dosage: 10 ML, QD
     Route: 048
     Dates: start: 20021108
  4. CO-DYDRAMOL [Concomitant]
     Indication: BACK PAIN
     Dosage: 2 MG, PRN
     Route: 048
  5. DICLOFENAC [Suspect]
     Indication: BACK PAIN
     Dosage: 50 MG, TID
     Route: 048
     Dates: start: 20020111

REACTIONS (2)
  - DISSEMINATED INTRAVASCULAR COAGULATION [None]
  - GASTROINTESTINAL HAEMORRHAGE [None]
